FAERS Safety Report 6988407-X (Version None)
Quarter: 2010Q3

REPORT INFORMATION
  Report Type: 
  Country: None (occurrence: None)
  Receive Date: 20100916
  Receipt Date: 20100913
  Transmission Date: 20110219
  Serious: Yes (Death, Hospitalization, Other)
  Sender: FDA-Public Use
  Company Number: PHHY2010JP04400

PATIENT
  Sex: Female

DRUGS (2)
  1. ZOMETA [Suspect]
     Indication: BREAST CANCER METASTATIC
     Dosage: 4 MG MONTHLY
     Route: 042
     Dates: start: 20070516, end: 20080625
  2. AROMASIN [Concomitant]
     Indication: METASTASES TO BONE
     Dosage: 25 MG, UNK
     Route: 048
     Dates: start: 20070901, end: 20071201

REACTIONS (3)
  - MALIGNANT NEOPLASM PROGRESSION [None]
  - OSTEONECROSIS OF JAW [None]
  - SURGERY [None]
